FAERS Safety Report 5503735-2 (Version None)
Quarter: 2007Q4

REPORT INFORMATION
  Report Type: 
  Country: None (occurrence: None)
  Receive Date: 20071030
  Receipt Date: 20071030
  Transmission Date: 20080405
  Serious: Yes (Hospitalization)
  Sender: FDA-Public Use
  Company Number: None

PATIENT
  Age: 42 Year
  Sex: Male
  Weight: 83.9154 kg

DRUGS (4)
  1. ZETIA [Suspect]
  2. COUMADIN [Concomitant]
  3. COREG [Concomitant]
  4. SPIRONOLACTONE [Concomitant]

REACTIONS (1)
  - RHABDOMYOLYSIS [None]
